FAERS Safety Report 7313072-1 (Version None)
Quarter: 2011Q1

REPORT INFORMATION
  Report Type: 
  Country: None (occurrence: None)
  Receive Date: 20110225
  Receipt Date: 20110216
  Transmission Date: 20110831
  Serious: No
  Sender: FDA-Public Use
  Company Number: US-BIOGENIDEC-2011BI005957

PATIENT
  Age: 42 Year
  Sex: Female

DRUGS (1)
  1. TYSABRI [Suspect]
     Indication: MULTIPLE SCLEROSIS
     Route: 042
     Dates: start: 20071227

REACTIONS (5)
  - BRAIN NEOPLASM [None]
  - INSOMNIA [None]
  - MULTIPLE SCLEROSIS RELAPSE [None]
  - STOMATITIS [None]
  - STRESS [None]
